FAERS Safety Report 8118182-7 (Version None)
Quarter: 2012Q1

REPORT INFORMATION
  Report Type: 
  Country: None (occurrence: None)
  Receive Date: 20120207
  Receipt Date: 20120131
  Transmission Date: 20120608
  Serious: Yes (Other)
  Sender: FDA-Public Use
  Company Number: US-BAYER-201041642NA

PATIENT
  Age: 23 Year
  Sex: Female
  Weight: 84.807 kg

DRUGS (2)
  1. MIRENA [Suspect]
     Dosage: FREQUENCY CONTINUOUS
     Route: 015
     Dates: start: 20090218, end: 20101109
  2. DETROL [Concomitant]
     Indication: MICTURITION URGENCY
     Dosage: 4 MG, QD
     Route: 048

REACTIONS (6)
  - WEIGHT INCREASED [None]
  - BREAST TENDERNESS [None]
  - MENSTRUATION IRREGULAR [None]
  - PREGNANCY WITH CONTRACEPTIVE DEVICE [None]
  - ABORTION SPONTANEOUS [None]
  - HAEMORRHAGE IN PREGNANCY [None]
